FAERS Safety Report 21850347 (Version 1)
Quarter: 2023Q1

REPORT INFORMATION
  Report Type: Spontaneous
  Country: IT (occurrence: IT)
  Receive Date: 20230111
  Receipt Date: 20230111
  Transmission Date: 20230418
  Serious: Yes (Hospitalization)
  Sender: FDA-Public Use
  Company Number: IT-ROCHE-3254421

PATIENT
  Age: 79 Year
  Sex: Female
  Weight: 70 kg

DRUGS (13)
  1. PACLITAXEL [Suspect]
     Active Substance: PACLITAXEL
     Indication: HER2 positive breast cancer
     Dosage: 80 MG/M2, WEEKLY FREQUENCY:ONCE,ROA: IV (NOS) MOST RECENT DOSE PRIOR TO AE 06SEP2019
     Route: 042
     Dates: start: 20190509
  2. CAPECITABINE [Suspect]
     Active Substance: CAPECITABINE
     Indication: HER2 positive breast cancer
     Dosage: 2000 MG FREQ:2 WK;FREQUENCY:ONCEMOST RECENT DOSE PRIOR TO THE EVENT: 01MAR2021
     Route: 048
     Dates: start: 20200702, end: 20200723
  3. TRASTUZUMAB [Suspect]
     Active Substance: TRASTUZUMAB
     Indication: HER2 positive breast cancer
     Dosage: 6 MG/KG, EVERY 3 WEEKS MOST RECENT DOSE PRIOR TO AE 02JUL2020 ROA: IV (NOT OTHERWISE SPECIFIED)
     Route: 042
     Dates: start: 20190530, end: 20200214
  4. ADO-TRASTUZUMAB EMTANSINE [Suspect]
     Active Substance: ADO-TRASTUZUMAB EMTANSINE
     Indication: HER2 positive breast cancer
     Dosage: 252 MG/KG, EVERY 3 WEEKS ROA:IV (NOS), FREQUNCY:ONCE MOST RECENT DOSE PRIOR TO AE 31MAR2020
     Route: 042
     Dates: start: 20200310
  5. PERTUZUMAB [Suspect]
     Active Substance: PERTUZUMAB
     Indication: HER2 positive breast cancer
     Dosage: 420 MG, EVERY 3 WEEKS ROA:IV (NOS), FREQUENCY: ONCE MOST RECENT DOSE PRIOR TO AE 14FEB2020
     Route: 042
     Dates: start: 20190530
  6. LETROZOLE [Suspect]
     Active Substance: LETROZOLE
     Indication: HER2 positive breast cancer
     Dosage: 2.5 MG, 1X/DAY MOST RECENT DOSE PRIOR TO AE 02MAR2020, FREQUENCY ONCE
     Route: 048
     Dates: start: 20191030
  7. LEVOTHYROXINE SODIUM [Concomitant]
     Active Substance: LEVOTHYROXINE SODIUM
     Dosage: UNK
  8. PREGABALIN [Concomitant]
     Active Substance: PREGABALIN
     Dosage: ONGOING
     Dates: start: 20210119
  9. NORMAST [Concomitant]
     Dosage: UNK
     Dates: start: 20210119
  10. LEVACECARNINE HYDROCHLORIDE [Concomitant]
     Active Substance: LEVACECARNINE HYDROCHLORIDE
     Dosage: UNK
     Dates: start: 20210119
  11. CITALOPRAM [Concomitant]
     Active Substance: CITALOPRAM HYDROBROMIDE
     Dosage: UNK
     Dates: start: 20200715
  12. LOPERAMIDE HYDROCHLORIDE [Concomitant]
     Active Substance: LOPERAMIDE HYDROCHLORIDE
     Dosage: UNK
  13. ACETAMINOPHEN\OXYCODONE HYDROCHLORIDE [Concomitant]
     Active Substance: ACETAMINOPHEN\OXYCODONE HYDROCHLORIDE
     Dosage: UNK
     Dates: start: 20201022

REACTIONS (2)
  - Anal haemorrhage [Recovered/Resolved]
  - Anal haemorrhage [Recovered/Resolved]

NARRATIVE: CASE EVENT DATE: 20221028
